FAERS Safety Report 22853507 (Version 4)
Quarter: 2023Q4

REPORT INFORMATION
  Report Type: Report from Study
  Country: PL (occurrence: PL)
  Receive Date: 20230823
  Receipt Date: 20231109
  Transmission Date: 20240110
  Serious: Yes (Hospitalization, Other)
  Sender: FDA-Public Use
  Company Number: PL-AUROBINDO-AUR-APL-2023-051242

PATIENT
  Age: 21 Year
  Sex: Male

DRUGS (3)
  1. IBUPROFEN [Suspect]
     Active Substance: IBUPROFEN
     Indication: Back pain
     Dosage: 400 MILLIGRAM (TREATED WITH DRUG AD HOC)
     Route: 065
  2. IBUPROFEN [Suspect]
     Active Substance: IBUPROFEN
     Indication: Spinal pain
  3. KETOPROFEN [Suspect]
     Active Substance: KETOPROFEN
     Indication: Back pain
     Dosage: UNK, (TREATED WITH DRUG AD HOC)
     Route: 065

REACTIONS (6)
  - Acute kidney injury [Unknown]
  - Pain [Recovering/Resolving]
  - Tubulointerstitial nephritis [Recovering/Resolving]
  - Urine abnormality [Recovering/Resolving]
  - Proteinuria [Recovering/Resolving]
  - Oliguria [Recovering/Resolving]
